FAERS Safety Report 20065943 (Version 2)
Quarter: 2021Q4

REPORT INFORMATION
  Report Type: Spontaneous
  Country: CH (occurrence: CH)
  Receive Date: 20211114
  Receipt Date: 20211121
  Transmission Date: 20220303
  Serious: Yes (Death)
  Sender: FDA-Public Use
  Company Number: CH-BAYER-2021A247814

PATIENT

DRUGS (1)
  1. EYLEA [Suspect]
     Active Substance: AFLIBERCEPT
     Indication: Product used for unknown indication
     Dosage: AFFECTED EYE, DOSE, FREQUENCY OR TOTAL NUMBER OF INJECTIONS WAS NOT REPORTED
     Dates: start: 20200923

REACTIONS (1)
  - Death [Fatal]
